FAERS Safety Report 18715778 (Version 5)
Quarter: 2022Q4

REPORT INFORMATION
  Report Type: Report from Study
  Country: US (occurrence: US)
  Receive Date: 20210108
  Receipt Date: 20221014
  Transmission Date: 20230112
  Serious: Yes (Hospitalization, Other)
  Sender: FDA-Public Use
  Company Number: US-ACADIA PHARMACEUTICALS INC.-ACA-2020-PIM-004040

PATIENT
  Age: 85 Year
  Sex: Female

DRUGS (4)
  1. NUPLAZID [Suspect]
     Active Substance: PIMAVANSERIN TARTRATE
     Indication: Parkinson^s disease
     Dosage: 34 MILLIGRAM, QD
     Route: 048
     Dates: start: 20200922
  2. MELOXICAM [Concomitant]
     Active Substance: MELOXICAM
  3. CRANBERRY [Concomitant]
     Active Substance: CRANBERRY
     Dosage: 250 MILLIGRAM
  4. NITROFURANTOIN [Concomitant]
     Active Substance: NITROFURANTOIN
     Dosage: 100 MILLIGRAM

REACTIONS (6)
  - Intestinal haemorrhage [Unknown]
  - Bacterial infection [Not Recovered/Not Resolved]
  - Product dose omission issue [Recovered/Resolved]
  - Urinary tract infection [Unknown]
  - Product dose omission issue [Recovered/Resolved]
  - Hallucination [Not Recovered/Not Resolved]

NARRATIVE: CASE EVENT DATE: 20220601
